FAERS Safety Report 4898328-4 (Version None)
Quarter: 2006Q1

REPORT INFORMATION
  Report Type: 
  Country: None (occurrence: None)
  Receive Date: 20060127
  Receipt Date: 20060114
  Transmission Date: 20060701
  Serious: Yes (Other)
  Sender: FDA-Public Use
  Company Number: USA050495385

PATIENT
  Age: 62 Year
  Sex: Female

DRUGS (9)
  1. EVISTA [Suspect]
     Dosage: 60 MG, DAILY (1/D),
     Dates: start: 19990101
  2. FORTEO [Suspect]
     Indication: FRACTURE
     Dates: start: 20050407
  3. CALCIUM (CALCIUM) [Concomitant]
  4. VITAMIN B6 (VITAMIN B6) [Concomitant]
  5. MULTI-VITAMIN [Concomitant]
  6. FORTEO PEN, 250MCG/ML (3ML) (FORTEO PEN 250MCG/ML (3ML)) PEN, DISPOSAB [Concomitant]
  7. FORTEO PEN, 250MCG/ML (3ML) (FORTEO PEN 250MCG/ML (3ML)) PEN, DISPOSAB [Concomitant]
  8. FORTEO PEN, 250MCG/ML (3ML) (FORTEO PEN 250MCG/ML (3ML)) PEN, DISPOSAB [Concomitant]
  9. FORTEO [Concomitant]

REACTIONS (15)
  - ARTHRALGIA [None]
  - BACK PAIN [None]
  - BODY HEIGHT DECREASED [None]
  - CONTUSION [None]
  - DIZZINESS [None]
  - FALL [None]
  - FATIGUE [None]
  - HIP FRACTURE [None]
  - INJECTION SITE ERYTHEMA [None]
  - INJECTION SITE PAIN [None]
  - INJURY [None]
  - NAUSEA [None]
  - PAIN [None]
  - PAIN IN EXTREMITY [None]
  - PHARMACEUTICAL PRODUCT COMPLAINT [None]
